FAERS Safety Report 9277964 (Version 2)
Quarter: 2013Q2

REPORT INFORMATION
  Report Type: Report from Study
  Country: NL (occurrence: NL)
  Receive Date: 20130508
  Receipt Date: 20130528
  Transmission Date: 20140414
  Serious: Yes (Death)
  Sender: FDA-Public Use
  Company Number: PHHY2013NL045219

PATIENT
  Age: 73 Year
  Sex: Male

DRUGS (4)
  1. ZOMETA [Suspect]
     Indication: PROSTATE CANCER METASTATIC
     Dosage: 4MG, /100ML ONCE EVERY 28 DAYS
     Route: 042
  2. ZOMETA [Suspect]
     Dosage: 4MG, /100ML ONCE EVERY 28 DAYS
     Route: 042
     Dates: start: 20130124
  3. ZOMETA [Suspect]
     Dosage: 4MG, /100ML ONCE EVERY 28 DAYS
     Route: 042
     Dates: start: 20130321
  4. ZOMETA [Suspect]
     Dosage: 4MG, /100ML ONCE EVERY 28 DAYS
     Route: 042
     Dates: start: 20130419

REACTIONS (1)
  - Death [Fatal]
